FAERS Safety Report 4545988-3 (Version None)
Quarter: 2005Q1

REPORT INFORMATION
  Report Type: 
  Country: None (occurrence: None)
  Receive Date: 20050106
  Receipt Date: 20050104
  Transmission Date: 20050727
  Serious: Yes (Hospitalization)
  Sender: FDA-Public Use
  Company Number: GB-JNJFOC-20050100690

PATIENT
  Age: 7 Year
  Sex: Female

DRUGS (1)
  1. IBUPROFEN [Suspect]
     Indication: DRUG USE FOR UNKNOWN INDICATION
     Route: 065

REACTIONS (4)
  - BLOOD PRESSURE DIASTOLIC DECREASED [None]
  - HAEMOGLOBIN DECREASED [None]
  - HYPOTHERMIA [None]
  - PLATELET COUNT DECREASED [None]
